FAERS Safety Report 10103021 (Version 1)
Quarter: 2014Q2

REPORT INFORMATION
  Report Type: Report from Study
  Country: US (occurrence: US)
  Receive Date: 20140424
  Receipt Date: 20140424
  Transmission Date: 20141212
  Serious: Yes (Hospitalization)
  Sender: FDA-Public Use
  Company Number: US-ELI_LILLY_AND_COMPANY-US201404005515

PATIENT
  Age: 36 Year
  Sex: Female

DRUGS (4)
  1. DULOXETINE HYDROCHLORIDE [Suspect]
     Indication: MAJOR DEPRESSION
     Dosage: 60 MG, QD
     Route: 065
  2. DULOXETINE HYDROCHLORIDE [Suspect]
     Indication: NEURALGIA
     Dosage: 90 MG, QD
     Route: 065
     Dates: end: 201401
  3. DULOXETINE HYDROCHLORIDE [Suspect]
     Indication: SPINAL PAIN
     Dosage: 60 MG, QD
     Route: 065
     Dates: start: 201401, end: 201402
  4. TOPAMAX [Concomitant]
     Indication: PRODUCT USED FOR UNKNOWN INDICATION
     Dosage: UNK, UNKNOWN
     Route: 065

REACTIONS (4)
  - Depression suicidal [Unknown]
  - Hypertension [Unknown]
  - Drug ineffective [Recovered/Resolved]
  - Drug withdrawal syndrome [Unknown]
